FAERS Safety Report 12666890 (Version 2)
Quarter: 2016Q3

REPORT INFORMATION
  Report Type: Spontaneous
  Country: US (occurrence: US)
  Receive Date: 20160819
  Receipt Date: 20160825
  Transmission Date: 20161109
  Serious: Yes (Hospitalization)
  Sender: FDA-Public Use
  Company Number: US-HORIZON-RAV-0161-2016

PATIENT
  Age: 59 Year
  Sex: Female

DRUGS (1)
  1. RAVICTI [Suspect]
     Active Substance: GLYCEROL PHENYLBUTYRATE
     Indication: UREA CYCLE ENZYME DEFICIENCY
     Dosage: 5 ML TID
     Dates: start: 2007

REACTIONS (5)
  - Diastolic dysfunction [Unknown]
  - Blood pressure decreased [Unknown]
  - Chest pain [Unknown]
  - Stress [Unknown]
  - Syncope [Unknown]

NARRATIVE: CASE EVENT DATE: 201607
